FAERS Safety Report 7987001-1 (Version None)
Quarter: 2011Q4

REPORT INFORMATION
  Report Type: 
  Country: None (occurrence: None)
  Receive Date: 20111216
  Receipt Date: 20110309
  Transmission Date: 20120403
  Serious: No
  Sender: FDA-Public Use
  Company Number: US-BRISTOL-MYERS SQUIBB COMPANY-15598337

PATIENT
  Age: 40 Year
  Sex: Female
  Weight: 159 kg

DRUGS (11)
  1. DICYCLOMINE [Concomitant]
  2. ABILIFY [Suspect]
     Indication: DEPRESSION
  3. IBUPROFEN [Concomitant]
  4. PROMETHAZINE [Concomitant]
  5. GABAPENTIN [Concomitant]
  6. DIAZEPAM [Concomitant]
  7. OXYCODONE HCL [Concomitant]
     Indication: BACK PAIN
  8. FLUOXETINE [Concomitant]
  9. MAXIDEX [Concomitant]
  10. LOPRESSOR [Concomitant]
  11. VERAPAMIL [Concomitant]

REACTIONS (3)
  - BLOOD GLUCOSE INCREASED [None]
  - CANDIDIASIS [None]
  - FUNGAL INFECTION [None]
